FAERS Safety Report 12066885 (Version 1)
Quarter: 2016Q1

REPORT INFORMATION
  Report Type: Spontaneous
  Country: US (occurrence: None)
  Receive Date: 20160210
  Receipt Date: 20160210
  Transmission Date: 20160526
  Serious: Yes (Life-Threatening, Hospitalization)
  Sender: FDA-Public Use
  Company Number: None

PATIENT
  Age: 75 Year
  Sex: Male
  Weight: 76.7 kg

DRUGS (1)
  1. CETUXIMAB [Suspect]
     Active Substance: CETUXIMAB
     Indication: SQUAMOUS CELL CARCINOMA
     Route: 058
     Dates: start: 20160202, end: 20160202

REACTIONS (7)
  - Pruritus [None]
  - Dizziness [None]
  - Abdominal pain upper [None]
  - Anaphylactic reaction [None]
  - Rash [None]
  - Urticaria [None]
  - Vision blurred [None]

NARRATIVE: CASE EVENT DATE: 20160202
